FAERS Safety Report 7282165-X (Version None)
Quarter: 2011Q1

REPORT INFORMATION
  Report Type: 
  Country: None (occurrence: None)
  Receive Date: 20110209
  Receipt Date: 20110131
  Transmission Date: 20110831
  Serious: Yes (Other)
  Sender: FDA-Public Use
  Company Number: US-AMGEN-USASP2011006788

PATIENT
  Sex: Female

DRUGS (4)
  1. HYDROCODONE [Suspect]
     Dosage: UNK
  2. PREDNISOL                          /00016201/ [Suspect]
     Dosage: UNK
  3. ACETAMINOPHEN [Suspect]
     Dosage: UNK
  4. ENBREL [Suspect]
     Indication: RHEUMATOID ARTHRITIS
     Dosage: UNK
     Dates: start: 19990201

REACTIONS (6)
  - ILL-DEFINED DISORDER [None]
  - LYMPHOMA [None]
  - DRUG HYPERSENSITIVITY [None]
  - ABDOMINAL DISCOMFORT [None]
  - TYPE 2 DIABETES MELLITUS [None]
  - EYE DISORDER [None]
